FAERS Safety Report 4984811-X (Version None)
Quarter: 2006Q2

REPORT INFORMATION
  Report Type: 
  Country: None (occurrence: None)
  Receive Date: 20060419
  Receipt Date: 20060405
  Transmission Date: 20061013
  Serious: Yes (Other)
  Sender: FDA-Public Use
  Company Number: FR200604000658

PATIENT
  Age: 60 Year
  Sex: Female

DRUGS (1)
  1. RALOXIFENE HCL [Suspect]
     Indication: OSTEOPOROSIS
     Dosage: DAILY (1/D), ORAL
     Route: 048
     Dates: start: 20051020

REACTIONS (2)
  - CYSTITIS [None]
  - MALIGNANT OVARIAN CYST [None]
